FAERS Safety Report 7369652-0 (Version None)
Quarter: 2011Q1

REPORT INFORMATION
  Report Type: 
  Country: None (occurrence: None)
  Receive Date: 20110323
  Receipt Date: 20110315
  Transmission Date: 20110831
  Serious: Yes (Death)
  Sender: FDA-Public Use
  Company Number: US-PFIZER INC-2010168239

PATIENT
  Age: 77 Year
  Sex: Female
  Weight: 55 kg

DRUGS (5)
  1. RITUXIMAB [Suspect]
     Indication: MANTLE CELL LYMPHOMA
     Dosage: 375 MG/M2 AT INITIAL RATE OF 50 MG/HR INCRS BY 50 MG/HR EVERY 30 MINS TO A 400MG/HR ON DAY 1 / 4WKS
     Route: 042
     Dates: start: 20061016, end: 20070530
  2. TORISEL [Suspect]
     Dosage: 25 MG (FLAT) IV OVER 30 MINUTES DAYS 1,8, 15,22 EVERY 4 WEEKS
     Route: 042
     Dates: start: 20061016, end: 20070912
  3. TORISEL [Suspect]
     Indication: MANTLE CELL LYMPHOMA
     Dosage: 25 MG (FLAT) IV OVER 30 MINUTES DAYS 1,8, 15,22
     Route: 042
     Dates: start: 20061016, end: 20070912
  4. RITUXIMAB [Suspect]
     Dosage: 375 MG/M2 AT  RATE 100 MG/HR INCRS BY 100 MG/HR EVRY 30 MINS TO A 400MG/HR ON DAY 1XCYCLS3,5,7,9,11
     Route: 042
     Dates: start: 20061016, end: 20070530
  5. RITUXIMAB [Suspect]
     Dosage: 375 MG/M2 AT INITIAL RATE OF 100 MG/HR INCRS BY 100 MG/HR EVERY 30 MINS TO A 400MG/HR ON DAY 8,15,22
     Route: 042
     Dates: start: 20061016, end: 20070530

REACTIONS (2)
  - NEOPLASM MALIGNANT [None]
  - MYELODYSPLASTIC SYNDROME [None]
